FAERS Safety Report 5429526-9 (Version None)
Quarter: 2007Q3

REPORT INFORMATION
  Report Type: 
  Country: None (occurrence: None)
  Receive Date: 20070829
  Receipt Date: 20070820
  Transmission Date: 20080115
  Serious: Yes (Other)
  Sender: FDA-Public Use
  Company Number: US-JNJFOC-20070804442

PATIENT
  Sex: Female
  Weight: 68.95 kg

DRUGS (2)
  1. TOPAMAX [Suspect]
     Indication: MIGRAINE PROPHYLAXIS
     Route: 048
  2. LAMICTAL [Concomitant]
     Indication: DEPRESSION
     Route: 048

REACTIONS (1)
  - NEOPLASM [None]
